FAERS Safety Report 8263006-0 (Version None)
Quarter: 2012Q2

REPORT INFORMATION
  Report Type: 
  Country: None (occurrence: None)
  Receive Date: 20120405
  Receipt Date: 20120326
  Transmission Date: 20120825
  Serious: Yes (Other)
  Sender: FDA-Public Use
  Company Number: GB-JNJFOC-20120401721

PATIENT
  Age: 48 Year
  Sex: Male

DRUGS (3)
  1. TRAMADOL HCL [Suspect]
     Indication: NEUROPATHY PERIPHERAL
     Dosage: 100 MG ONCE IN 6-8 HOURS
     Route: 065
  2. OXYCONTIN [Suspect]
     Indication: NEUROPATHY PERIPHERAL
     Route: 065
  3. ACETAMINOPHEN AND CODEINE PHOSPHATE [Suspect]
     Indication: NEUROPATHY PERIPHERAL
     Route: 065

REACTIONS (1)
  - HYPOGONADISM [None]
